FAERS Safety Report 7379770-9 (Version None)
Quarter: 2011Q1

REPORT INFORMATION
  Report Type: 
  Country: None (occurrence: None)
  Receive Date: 20110329
  Receipt Date: 20110322
  Transmission Date: 20110831
  Serious: Yes (Hospitalization)
  Sender: FDA-Public Use
  Company Number: US-ASTELLAS-2011US001159

PATIENT
  Sex: Male
  Weight: 86 kg

DRUGS (1)
  1. PROGRAF [Suspect]
     Indication: RENAL TRANSPLANT
     Dosage: 2 MG, BID
     Route: 048
     Dates: start: 20060301

REACTIONS (5)
  - HEART RATE IRREGULAR [None]
  - TREATMENT NONCOMPLIANCE [None]
  - INCOHERENT [None]
  - FEELING DRUNK [None]
  - THROMBOSIS [None]
